FAERS Safety Report 9917143 (Version 3)
Quarter: 2014Q2

REPORT INFORMATION
  Report Type: Spontaneous
  Country: LB (occurrence: LB)
  Receive Date: 20140221
  Receipt Date: 20140516
  Transmission Date: 20141212
  Serious: Yes (Hospitalization, Other)
  Sender: FDA-Public Use
  Company Number: LB-UCBSA-113064

PATIENT
  Sex: Male

DRUGS (5)
  1. CIMZIA [Suspect]
     Indication: RHEUMATOID ARTHRITIS
     Dosage: 1 PACK (TWO 200 MG INJECTIONS) ONCE A MONTH
     Route: 058
     Dates: start: 20131111
  2. CIMZIA [Suspect]
     Indication: RHEUMATOID ARTHRITIS
     Route: 058
  3. PANADOL SINUS [Concomitant]
     Indication: HEADACHE
  4. EBASTEL [Concomitant]
     Indication: HEADACHE
  5. GLUCOPHAGE [Concomitant]

REACTIONS (2)
  - Headache [Not Recovered/Not Resolved]
  - Dyspnoea [Not Recovered/Not Resolved]
